FAERS Safety Report 7476104-6 (Version None)
Quarter: 2011Q2

REPORT INFORMATION
  Report Type: 
  Country: None (occurrence: None)
  Receive Date: 20110512
  Receipt Date: 20110510
  Transmission Date: 20111010
  Serious: Yes (Death, Other)
  Sender: FDA-Public Use
  Company Number: VE-PFIZER INC-2011100821

PATIENT

DRUGS (2)
  1. LIPITOR [Suspect]
     Dosage: UNK
  2. NORVASC [Concomitant]
     Dosage: UNK

REACTIONS (1)
  - DEATH [None]
